FAERS Safety Report 5989319-0 (Version None)
Quarter: 2008Q4

REPORT INFORMATION
  Report Type: 
  Country: None (occurrence: None)
  Receive Date: 20081210
  Receipt Date: 20081204
  Transmission Date: 20090506
  Serious: Yes (Other)
  Sender: FDA-Public Use
  Company Number: US-AVENTIS-200816810US

PATIENT
  Sex: Male
  Weight: 76.2 kg

DRUGS (7)
  1. LANTUS [Suspect]
     Dosage: DOSE: 65-70
     Route: 058
     Dates: start: 20060101
  2. OPTICLIK (INSULIN INJECTION PEN) [Suspect]
     Dates: start: 20060101
  3. AMBIEN [Concomitant]
     Indication: INSOMNIA
  4. COREG [Concomitant]
  5. ELAVIL [Concomitant]
  6. LASIX [Concomitant]
  7. ZOCOR [Concomitant]

REACTIONS (2)
  - HYPOGLYCAEMIA [None]
  - ROAD TRAFFIC ACCIDENT [None]
